FAERS Safety Report 5013426-2 (Version None)
Quarter: 2006Q2

REPORT INFORMATION
  Report Type: 
  Country: None (occurrence: None)
  Receive Date: 20060525
  Receipt Date: 20060509
  Transmission Date: 20061013
  Serious: Yes (Disabling)
  Sender: FDA-Public Use
  Company Number: US200605002025

PATIENT
  Age: 68 Year
  Sex: Female

DRUGS (2)
  1. HUMULIN N [Suspect]
     Indication: DIABETES MELLITUS
     Dosage: SEE IMAGE
  2. HUMULIN R [Suspect]
     Indication: DIABETES MELLITUS
     Dosage: 5 U, EACH MORNING,

REACTIONS (2)
  - ARTHRITIS [None]
  - PHARMACEUTICAL PRODUCT COMPLAINT [None]
